FAERS Safety Report 5391025-0 (Version None)
Quarter: 2007Q3

REPORT INFORMATION
  Report Type: 
  Country: None (occurrence: None)
  Receive Date: 20070717
  Receipt Date: 20070710
  Transmission Date: 20080115
  Serious: Yes (Hospitalization)
  Sender: FDA-Public Use
  Company Number: 163-C5013-07070509

PATIENT
  Age: 64 Year
  Sex: Male
  Weight: 100.6985 kg

DRUGS (22)
  1. CC-5013 (LENALIDOMIDE) (CAPSULES) [Suspect]
     Indication: NEOPLASM
     Dosage: 20 MG, DAYS 1-21, ORAL
     Route: 048
     Dates: start: 20060118, end: 20070621
  2. DOCETAXEL [Suspect]
     Indication: NEOPLASM
     Dosage: 35 MG/M2, DAYS 1, 8, 15
     Dates: start: 20060118, end: 20070621
  3. OMEPRAZOLE [Concomitant]
  4. INSULIN GLARGINE (INSULIN GLARGINE) [Concomitant]
  5. METFORMIN HCL [Concomitant]
  6. NOVOLOG [Concomitant]
  7. NAPROXEN [Concomitant]
  8. GABAPENTIN [Concomitant]
  9. LISINOPRIL [Concomitant]
  10. GLYNASE [Concomitant]
  11. AMITRIPTYLINE HCL [Concomitant]
  12. LORATADINE [Concomitant]
  13. GLYBURIDE (BLIBENCLAMIDE) [Concomitant]
  14. AMBIEN [Concomitant]
  15. DECADRON [Concomitant]
  16. ATENOLOL [Concomitant]
  17. PLAVIX [Concomitant]
  18. EZETIMIBE [Concomitant]
  19. ALKA SELTZER PLUS (SINE-OFF) [Concomitant]
  20. LUPRON [Concomitant]
  21. TORSEMIDE [Concomitant]
  22. MAGNESIUM (MAGNESIUM) [Concomitant]

REACTIONS (2)
  - MUSCLE ABSCESS [None]
  - OEDEMA PERIPHERAL [None]
